FAERS Safety Report 6772125-7 (Version None)
Quarter: 2010Q2

REPORT INFORMATION
  Report Type: 
  Country: None (occurrence: None)
  Receive Date: 20100616
  Receipt Date: 20100616
  Transmission Date: 20101027
  Serious: Yes (Hospitalization)
  Sender: FDA-Public Use
  Company Number: B0657763A

PATIENT
  Age: 54 Year
  Sex: Female

DRUGS (20)
  1. CLAMOXYL IV [Suspect]
     Indication: PROPHYLAXIS
     Dosage: 3G SINGLE DOSE
     Route: 042
     Dates: start: 20100517, end: 20100517
  2. ULTIVA [Suspect]
     Dosage: 2MG SINGLE DOSE
     Route: 042
     Dates: start: 20100517, end: 20100517
  3. ATRACURIUM [Suspect]
     Dosage: 40MG SINGLE DOSE
     Route: 042
     Dates: start: 20100517, end: 20100517
  4. PROPOFOL [Suspect]
     Dosage: 800MG SINGLE DOSE
     Route: 042
     Dates: start: 20100517, end: 20100517
  5. METRONIDAZOLE [Suspect]
     Dosage: 1G SINGLE DOSE
     Route: 042
     Dates: start: 20100517, end: 20100517
  6. NEURONTIN [Suspect]
     Indication: PREMEDICATION
     Route: 042
     Dates: start: 20100516, end: 20100517
  7. NORMACOL [Suspect]
     Indication: PREMEDICATION
     Route: 054
     Dates: start: 20100516, end: 20100516
  8. MORPHINE [Suspect]
     Indication: DRUG USE FOR UNKNOWN INDICATION
     Dosage: 5MG SINGLE DOSE
     Route: 042
     Dates: start: 20100517, end: 20100517
  9. BETADINE [Suspect]
     Route: 061
     Dates: start: 20100517, end: 20100517
  10. NAROPIN [Suspect]
     Dates: start: 20100517, end: 20100517
  11. DROPERIDOL [Suspect]
     Indication: POSTOPERATIVE CARE
     Route: 042
     Dates: start: 20100517, end: 20100517
  12. LOVENOX [Suspect]
     Indication: PREMEDICATION
     Dosage: 4000IU PER DAY
     Route: 058
     Dates: start: 20100516, end: 20100517
  13. KETAMINE [Suspect]
     Indication: POSTOPERATIVE CARE
     Route: 042
     Dates: start: 20100517, end: 20100518
  14. ZOLPIDEM [Concomitant]
     Route: 065
  15. DOLIPRANE [Concomitant]
     Route: 065
  16. ACUPAN [Concomitant]
     Indication: POSTOPERATIVE CARE
     Route: 065
     Dates: start: 20100517
  17. PERFALGAN [Concomitant]
     Route: 042
     Dates: start: 20100517
  18. SPASFON [Concomitant]
     Dates: start: 20100517
  19. PHYSIOLOGIC SERUM [Concomitant]
     Route: 065
     Dates: start: 20100517, end: 20100517
  20. GLUCOSE + POTASSIUM CHLORIDE + SODIUM CHLORIDE [Concomitant]
     Route: 065
     Dates: start: 20100517, end: 20100517

REACTIONS (6)
  - BLOOD CREATININE INCREASED [None]
  - HAEMATURIA [None]
  - LYMPHOPENIA [None]
  - OLIGURIA [None]
  - RENAL FAILURE ACUTE [None]
  - RENAL TUBULAR NECROSIS [None]
